FAERS Safety Report 8672658 (Version 6)
Quarter: 2012Q4

REPORT INFORMATION
  Report Type: 
  Country: DE (occurrence: DE)
  Receive Date: 20120719
  Receipt Date: 20121109
  Transmission Date: 20130627
  Serious: Yes (Death, Hospitalization)
  Sender: FDA-Public Use
  Company Number: DE-PFIZER INC-2012170129

PATIENT
  Age: 67 Year
  Sex: Male
  Weight: 90 kg

DRUGS (4)
  1. RAMIPRIL [Suspect]
     Indication: HYPERTENSION ARTERIAL
     Dosage: 5 mg, 1x/day
     Route: 048
     Dates: start: 200912, end: 201112
  2. ASS [Concomitant]
     Indication: ISCHAEMIC STROKE
     Dosage: 100 mg, daily
     Route: 048
  3. HCT [Concomitant]
     Indication: HYPERTENSION ARTERIAL
     Dosage: 25 mg every other day
     Route: 048
     Dates: start: 200912
  4. SIMVASTATIN [Concomitant]
     Indication: HYPERLIPOPROTEINEMIA
     Dosage: 20 mg, daily
     Route: 048

REACTIONS (3)
  - Angioedema [Fatal]
  - Hypoxia [Fatal]
  - Cardiac arrest [Fatal]
